FAERS Safety Report 13250684 (Version 3)
Quarter: 2017Q2

REPORT INFORMATION
  Report Type: Spontaneous
  Country: US (occurrence: US)
  Receive Date: 20170220
  Receipt Date: 20170511
  Transmission Date: 20170830
  Serious: No
  Sender: FDA-Public Use
  Company Number: US-BIOGEN-2017BI00357015

PATIENT
  Sex: Female

DRUGS (1)
  1. AVONEX [Suspect]
     Active Substance: INTERFERON BETA-1A
     Indication: MULTIPLE SCLEROSIS
     Route: 030
     Dates: start: 20100812, end: 20101215

REACTIONS (6)
  - Asthenia [Recovered/Resolved]
  - Multiple sclerosis relapse [Recovered/Resolved]
  - Dysphemia [Recovered/Resolved]
  - Influenza like illness [Recovered/Resolved]
  - Emotional disorder [Recovered/Resolved]
  - Drug ineffective [Recovered/Resolved]
